FAERS Safety Report 5664489-2 (Version None)
Quarter: 2008Q1

REPORT INFORMATION
  Report Type: 
  Country: None (occurrence: None)
  Receive Date: 20080314
  Receipt Date: 20080312
  Transmission Date: 20080703
  Serious: No
  Sender: FDA-Public Use
  Company Number: B0506105A

PATIENT
  Age: 6 Year
  Sex: Male
  Weight: 23 kg

DRUGS (4)
  1. AUGMENTIN '125' [Suspect]
     Indication: OTITIS MEDIA
     Dosage: 1G THREE TIMES PER DAY
     Route: 048
     Dates: start: 20080128, end: 20080202
  2. ZADITEN [Suspect]
     Indication: RHINITIS
     Dosage: 2.5ML TWICE PER DAY
     Route: 048
     Dates: start: 20080128
  3. MUCODYNE [Concomitant]
     Indication: DRUG USE FOR UNKNOWN INDICATION
     Route: 048
  4. TARIVID [Concomitant]
     Indication: OTITIS MEDIA
     Route: 061
     Dates: start: 20080128, end: 20080202

REACTIONS (1)
  - AMNESIA [None]
